FAERS Safety Report 7775370-7 (Version None)
Quarter: 2011Q3

REPORT INFORMATION
  Report Type: 
  Country: None (occurrence: None)
  Receive Date: 20110923
  Receipt Date: 20110919
  Transmission Date: 20111222
  Serious: Yes (Death, Other)
  Sender: FDA-Public Use
  Company Number: PHEH2009US08940

PATIENT
  Sex: Female

DRUGS (9)
  1. CEPHALEXIN [Concomitant]
  2. PERIDEX [Concomitant]
  3. ZOMETA [Suspect]
     Dosage: 4 MG, MONTHLY
     Dates: start: 20030101, end: 20070801
  4. ARIMIDEX [Concomitant]
  5. AVASTIN [Concomitant]
  6. MEGACE [Concomitant]
  7. LOPRESSOR [Concomitant]
  8. TYLENOL-500 [Concomitant]
  9. LORAZEPAM [Concomitant]

REACTIONS (13)
  - OSTEONECROSIS OF JAW [None]
  - INFECTION [None]
  - OSTEOLYSIS [None]
  - EAR PAIN [None]
  - EXPOSED BONE IN JAW [None]
  - HYPOPHAGIA [None]
  - PAIN [None]
  - DEFORMITY [None]
  - WEIGHT DECREASED [None]
  - GLAUCOMA [None]
  - JAW DISORDER [None]
  - GENERAL PHYSICAL HEALTH DETERIORATION [None]
  - VISUAL IMPAIRMENT [None]
